FAERS Safety Report 8487706-2 (Version None)
Quarter: 2012Q2

REPORT INFORMATION
  Report Type: 
  Country: None (occurrence: None)
  Receive Date: 20120402
  Receipt Date: 20100323
  Transmission Date: 20120825
  Serious: Yes (Other)
  Sender: FDA-Public Use
  Company Number: PHEH2009US02876

PATIENT
  Age: 69 Year
  Sex: Female

DRUGS (4)
  1. TEKTURNA [Suspect]
     Indication: HYPERTENSION
     Dosage: 150 MG, ORAL
     Route: 048
  2. HYDROCHLOROTHIAZIDE [Concomitant]
  3. EXFORGE [Suspect]
     Indication: BLOOD PRESSURE
     Dosage: 10/320 MG DAILY, ORAL
     Route: 048
     Dates: start: 20090201
  4. BYSTOLIC [Concomitant]

REACTIONS (4)
  - MUSCLE TIGHTNESS [None]
  - MUSCLE FATIGUE [None]
  - PAIN IN EXTREMITY [None]
  - OEDEMA PERIPHERAL [None]
